FAERS Safety Report 9541023 (Version 1)
Quarter: 2013Q3

REPORT INFORMATION
  Report Type: Spontaneous
  Country: DE (occurrence: DE)
  Receive Date: 20130922
  Receipt Date: 20130922
  Transmission Date: 20140515
  Serious: Yes (Hospitalization, Congenital Anomaly, Other)
  Sender: FDA-Public Use
  Company Number: DE-MYLANLABS-2013S1020249

PATIENT
  Age: 1 Day
  Sex: Female
  Weight: 3.71 kg

DRUGS (5)
  1. LAMOTRIGINE [Suspect]
     Route: 064
     Dates: start: 20070513, end: 20080225
  2. QUETIAPINE [Suspect]
     Route: 064
  3. LITHIUM [Suspect]
     Route: 064
     Dates: start: 20070513, end: 20080225
  4. METOPROLOL [Concomitant]
     Dosage: 29 -33 GESTATIONAL WEEK
     Route: 064
  5. AUGMENTAN [Concomitant]
     Route: 064
     Dates: start: 20080224, end: 20080225

REACTIONS (9)
  - Coarctation of the aorta [Unknown]
  - Congenital aortic valve stenosis [Recovered/Resolved with Sequelae]
  - Patent ductus arteriosus [Recovered/Resolved]
  - Atrial septal defect [Unknown]
  - Exposure during pregnancy [Recovered/Resolved]
  - Hypotonia [Recovered/Resolved]
  - Hypotension [Recovered/Resolved]
  - Neonatal respiratory distress syndrome [Recovered/Resolved]
  - Bradycardia neonatal [Recovered/Resolved]
